FAERS Safety Report 12851185 (Version 3)
Quarter: 2016Q4

REPORT INFORMATION
  Report Type: Report from Study
  Country: US (occurrence: US)
  Receive Date: 20161015
  Receipt Date: 20161219
  Transmission Date: 20170207
  Serious: Yes (Hospitalization, Other)
  Sender: FDA-Public Use
  Company Number: US-AMGEN-USASL2016141894

PATIENT
  Age: 64 Year
  Sex: Female

DRUGS (6)
  1. CALCIUM [Concomitant]
     Active Substance: CALCIUM
  2. ENBREL [Suspect]
     Active Substance: ETANERCEPT
     Dosage: 50 MG, QWK
     Route: 065
  3. ENBREL [Suspect]
     Active Substance: ETANERCEPT
     Dosage: UNK
     Route: 065
  4. PREDNISONE. [Suspect]
     Active Substance: PREDNISONE
     Indication: PRODUCT USED FOR UNKNOWN INDICATION
     Dosage: 5 MG, QD
     Route: 065
  5. ENBREL [Suspect]
     Active Substance: ETANERCEPT
     Indication: RHEUMATOID ARTHRITIS
     Dosage: 25 MG, 2 TIMES/WK
     Route: 065
     Dates: start: 19990909
  6. ENBREL [Suspect]
     Active Substance: ETANERCEPT
     Dosage: UNK
     Route: 065

REACTIONS (17)
  - Spinal fracture [Unknown]
  - Peripheral swelling [Unknown]
  - Open fracture [Unknown]
  - Lumbar vertebral fracture [Unknown]
  - Rheumatoid arthritis [Unknown]
  - Pain [Unknown]
  - Back pain [Unknown]
  - Hypertension [Unknown]
  - Exostosis [Unknown]
  - Osteoporosis [Unknown]
  - Visual impairment [Unknown]
  - Psoriasis [Unknown]
  - Drug dose omission [Unknown]
  - Activities of daily living impaired [Unknown]
  - Muscle twitching [Unknown]
  - Spinal compression fracture [Unknown]
  - Posture abnormal [Unknown]

NARRATIVE: CASE EVENT DATE: 2016
